FAERS Safety Report 13111327 (Version 4)
Quarter: 2017Q2

REPORT INFORMATION
  Report Type: Spontaneous
  Country: US (occurrence: US)
  Receive Date: 20170112
  Receipt Date: 20170516
  Transmission Date: 20170830
  Serious: No
  Sender: FDA-Public Use
  Company Number: US-ACTELION-A-US2016-145051

PATIENT
  Age: 27 Year
  Sex: Female
  Weight: 53.97 kg

DRUGS (4)
  1. LETAIRIS [Concomitant]
     Active Substance: AMBRISENTAN
  2. VELETRI [Suspect]
     Active Substance: EPOPROSTENOL
     Indication: PULMONARY ARTERIAL HYPERTENSION
     Dosage: 17 NG/KG, PER MIN
     Route: 042
     Dates: start: 20160421
  3. ADCIRCA [Concomitant]
     Active Substance: TADALAFIL
  4. CHLORAPREP [Concomitant]
     Active Substance: CHLORHEXIDINE GLUCONATE\ISOPROPYL ALCOHOL

REACTIONS (20)
  - Staphylococcal infection [Unknown]
  - Catheter site scab [Unknown]
  - Diarrhoea [Unknown]
  - Blister [Unknown]
  - Pain in jaw [Unknown]
  - Catheter site pain [Unknown]
  - Secretion discharge [Unknown]
  - Application site pruritus [Unknown]
  - Palpitations [Unknown]
  - Device related infection [Unknown]
  - Catheter site abscess [Unknown]
  - Pain in extremity [Unknown]
  - Flushing [Unknown]
  - Erythema [Unknown]
  - Scar [Unknown]
  - Catheter site erythema [Unknown]
  - Dyspnoea [Unknown]
  - Chemical burn [Unknown]
  - Catheter management [Unknown]
  - Dizziness [Unknown]

NARRATIVE: CASE EVENT DATE: 20170111
